FAERS Safety Report 25097708 (Version 1)
Quarter: 2025Q1

REPORT INFORMATION
  Report Type: Spontaneous
  Country: CA (occurrence: CA)
  Receive Date: 20250320
  Receipt Date: 20250320
  Transmission Date: 20250408
  Serious: Yes (Hospitalization, Other)
  Sender: PFIZER
  Company Number: CA-PFIZER INC-202500059306

PATIENT
  Age: 32 Year
  Sex: Female

DRUGS (3)
  1. XELJANZ XR [Suspect]
     Active Substance: TOFACITINIB CITRATE
     Indication: Rheumatoid arthritis
     Dosage: 11 MG, 1X/DAY
     Route: 048
     Dates: start: 20210703, end: 20250226
  2. CELEBREX [Concomitant]
     Active Substance: CELECOXIB
  3. METHOTREXATE [Concomitant]
     Active Substance: METHOTREXATE
     Indication: Rheumatoid arthritis
     Dates: start: 2009

REACTIONS (5)
  - Fall [Not Recovered/Not Resolved]
  - Upper limb fracture [Not Recovered/Not Resolved]
  - Ankle fracture [Not Recovered/Not Resolved]
  - Cough [Not Recovered/Not Resolved]
  - Respiratory disorder [Not Recovered/Not Resolved]

NARRATIVE: CASE EVENT DATE: 20250101
